FAERS Safety Report 16971037 (Version 1)
Quarter: 2019Q4

REPORT INFORMATION
  Report Type: Spontaneous
  Country: US (occurrence: US)
  Receive Date: 20191029
  Receipt Date: 20191029
  Transmission Date: 20200122
  Serious: Yes (Hospitalization)
  Sender: FDA-Public Use
  Company Number: US-JNJFOC-20191030247

PATIENT
  Age: 64 Year
  Sex: Male

DRUGS (5)
  1. RISPERDAL [Suspect]
     Active Substance: RISPERIDONE
     Indication: BIPOLAR DISORDER
     Route: 048
     Dates: start: 201811, end: 201812
  2. RISPERDAL CONSTA [Suspect]
     Active Substance: RISPERIDONE
     Route: 030
     Dates: start: 201808, end: 201812
  3. RISPERDAL CONSTA [Suspect]
     Active Substance: RISPERIDONE
     Indication: BIPOLAR DISORDER
     Route: 030
     Dates: end: 201808
  4. LITHIUM. [Concomitant]
     Active Substance: LITHIUM
  5. COGENTIN [Suspect]
     Active Substance: BENZTROPINE MESYLATE
     Route: 065

REACTIONS (12)
  - Tremor [Recovered/Resolved]
  - Psoas abscess [Recovered/Resolved]
  - Pneumonia aspiration [Recovered/Resolved]
  - Mania [Recovered/Resolved]
  - Urinary tract infection [Recovered/Resolved]
  - Dysphagia [Recovered/Resolved]
  - Insomnia [Recovered/Resolved]
  - Balance disorder [Not Recovered/Not Resolved]
  - Off label use [Unknown]
  - Catatonia [Recovered/Resolved]
  - Product dose omission [Unknown]
  - Product use issue [Unknown]

NARRATIVE: CASE EVENT DATE: 201808
